FAERS Safety Report 23766182 (Version 1)
Quarter: 2024Q2

REPORT INFORMATION
  Report Type: Spontaneous
  Country: JP (occurrence: JP)
  Receive Date: 20240422
  Receipt Date: 20240422
  Transmission Date: 20240716
  Serious: Yes (Death)
  Sender: FDA-Public Use
  Company Number: JP-TEYRO-2024-TY-000132

PATIENT
  Age: 76 Year
  Sex: Male

DRUGS (8)
  1. CARBOPLATIN [Suspect]
     Active Substance: CARBOPLATIN
     Indication: Signet-ring cell carcinoma
     Dosage: UNK
     Route: 065
  2. CARBOPLATIN [Suspect]
     Active Substance: CARBOPLATIN
     Indication: Signet-ring cell carcinoma
  3. TEGAFUR [Suspect]
     Active Substance: TEGAFUR
     Indication: Signet-ring cell carcinoma
     Dosage: UNK
     Route: 065
  4. TEGAFUR [Suspect]
     Active Substance: TEGAFUR
     Indication: Signet-ring cell carcinoma
  5. GIMERACIL [Suspect]
     Active Substance: GIMERACIL
     Indication: Signet-ring cell carcinoma
     Dosage: UNK
     Route: 065
  6. GIMERACIL [Suspect]
     Active Substance: GIMERACIL
     Indication: Signet-ring cell carcinoma
  7. OTERACIL [Suspect]
     Active Substance: OTERACIL
     Indication: Signet-ring cell carcinoma
     Dosage: UNK
     Route: 065
  8. OTERACIL [Suspect]
     Active Substance: OTERACIL
     Indication: Signet-ring cell carcinoma

REACTIONS (2)
  - Death [Fatal]
  - Off label use [Unknown]
